FAERS Safety Report 9871035 (Version 1)
Quarter: 2014Q1

REPORT INFORMATION
  Report Type: Spontaneous
  Country: US (occurrence: None)
  Receive Date: 20140204
  Receipt Date: 20140204
  Transmission Date: 20141002
  Serious: Yes (Hospitalization)
  Sender: FDA-Public Use
  Company Number: None

PATIENT
  Age: 75 Year
  Sex: Male
  Weight: 61 kg

DRUGS (1)
  1. IRINOTECAN (CPT-484 MG 11, CAMPTOSAR) [Suspect]

REACTIONS (10)
  - Syncope [None]
  - Orthostatic hypotension [None]
  - Sinus bradycardia [None]
  - Dehydration [None]
  - Pain [None]
  - Abdominal tenderness [None]
  - Abdominal pain upper [None]
  - Syncope [None]
  - Ileus [None]
  - Small intestinal obstruction [None]
